FAERS Safety Report 17544829 (Version 6)
Quarter: 2022Q3

REPORT INFORMATION
  Report Type: Spontaneous
  Country: US (occurrence: US)
  Receive Date: 20200316
  Receipt Date: 20220808
  Transmission Date: 20221027
  Serious: No
  Sender: FDA-Public Use
  Company Number: US-VERTEX PHARMACEUTICALS-2020-004845

PATIENT
  Sex: Female
  Weight: 57 kg

DRUGS (5)
  1. TRIKAFTA [Suspect]
     Active Substance: ELEXACAFTOR\IVACAFTOR\TEZACAFTOR
     Indication: Cystic fibrosis
     Dosage: 2 TABS (100 MG/ 50 MG/ 75 MG) IN AM AND 1 TAB (150 MG) IN PM
     Route: 048
     Dates: start: 20200301
  2. PULMOZYME [Concomitant]
     Active Substance: DORNASE ALFA
  3. OSELTAMIVIR [Concomitant]
     Active Substance: OSELTAMIVIR
  4. OMEPRAZOLE [Concomitant]
     Active Substance: OMEPRAZOLE
     Indication: Dysgeusia
     Route: 065
  5. AZITHROMYCIN [Concomitant]
     Active Substance: AZITHROMYCIN
     Dosage: 250 MG

REACTIONS (15)
  - Weight increased [Unknown]
  - Productive cough [Unknown]
  - Abdominal pain upper [Not Recovered/Not Resolved]
  - Abdominal pain [Not Recovered/Not Resolved]
  - Pain [Recovering/Resolving]
  - Arthralgia [Recovering/Resolving]
  - Asthenia [Recovering/Resolving]
  - Feeling abnormal [Recovering/Resolving]
  - Vomiting [Recovering/Resolving]
  - Mycobacterium avium complex infection [Unknown]
  - Dysphonia [Unknown]
  - Throat irritation [Recovered/Resolved]
  - Extra dose administered [Unknown]
  - Gastrooesophageal reflux disease [Not Recovered/Not Resolved]
  - Nail disorder [Unknown]

NARRATIVE: CASE EVENT DATE: 20200101
